FAERS Safety Report 5005093-9 (Version None)
Quarter: 2006Q2

REPORT INFORMATION
  Report Type: 
  Country: None (occurrence: None)
  Receive Date: 20060512
  Receipt Date: 20060427
  Transmission Date: 20061013
  Serious: Yes (Hospitalization)
  Sender: FDA-Public Use
  Company Number: PHRM2006FR01446

PATIENT
  Age: 57 Year
  Sex: Male

DRUGS (1)
  1. VISUDYNE [Suspect]
     Indication: CHORIORETINOPATHY
     Dates: start: 20051208, end: 20051208

REACTIONS (3)
  - CYTOLYTIC HEPATITIS [None]
  - HEPATITIS C POSITIVE [None]
  - HEPATITIS CHOLESTATIC [None]
